FAERS Safety Report 16211704 (Version 1)
Quarter: 2019Q2

REPORT INFORMATION
  Report Type: Spontaneous
  Country: US (occurrence: US)
  Receive Date: 20190418
  Receipt Date: 20190418
  Transmission Date: 20190711
  Serious: Yes (Death)
  Sender: FDA-Public Use
  Company Number: US-CLINIGEN GROUP PLC/ CLINIGEN HEALTHCARE LTD-US-CLGN-19-00269

PATIENT

DRUGS (3)
  1. FOSCARNET SODIUM. [Suspect]
     Active Substance: FOSCARNET SODIUM
     Indication: PNEUMONIA CYTOMEGALOVIRAL
  2. GANCICLOVIR. [Concomitant]
     Active Substance: GANCICLOVIR
     Indication: PNEUMONIA CYTOMEGALOVIRAL
  3. CIDOFOVIR. [Concomitant]
     Active Substance: CIDOFOVIR
     Indication: PNEUMONIA CYTOMEGALOVIRAL

REACTIONS (3)
  - Off label use [Unknown]
  - Pneumonia cytomegaloviral [Fatal]
  - Drug resistance [Unknown]
